FAERS Safety Report 12007529 (Version 2)
Quarter: 2016Q1

REPORT INFORMATION
  Report Type: Spontaneous
  Country: US (occurrence: US)
  Receive Date: 20160204
  Receipt Date: 20160328
  Transmission Date: 20160526
  Serious: Yes (Other)
  Sender: FDA-Public Use
  Company Number: US-PFIZER INC-2016063705

PATIENT
  Age: 8 Year
  Sex: Female
  Weight: 29.48 kg

DRUGS (8)
  1. RISPERDAL [Concomitant]
     Active Substance: RISPERIDONE
     Indication: ABNORMAL BEHAVIOUR
  2. RISPERDAL [Concomitant]
     Active Substance: RISPERIDONE
     Indication: ANXIETY
     Dosage: 3.5 ML AT 7:30AM AND 5PM
     Route: 048
  3. CLONIDINE. [Concomitant]
     Active Substance: CLONIDINE
     Dosage: 0.1 MG (ONE FULL TABLET) AT 7:30PM
     Route: 048
  4. QUILLIVANT XR [Suspect]
     Active Substance: METHYLPHENIDATE HYDROCHLORIDE
     Indication: COMPULSIONS
  5. QUILLIVANT XR [Suspect]
     Active Substance: METHYLPHENIDATE HYDROCHLORIDE
     Indication: AUTISM
  6. RISPERDAL [Concomitant]
     Active Substance: RISPERIDONE
     Indication: COMPULSIONS
  7. QUILLIVANT XR [Suspect]
     Active Substance: METHYLPHENIDATE HYDROCHLORIDE
     Indication: ANXIETY
     Dosage: 1 ML IN APPLESAUCE, ONCE A DAY AT 7:30AM
     Dates: start: 20160128
  8. CLONIDINE. [Concomitant]
     Active Substance: CLONIDINE
     Indication: AUTISM
     Dosage: 0.05 MG (HALF TABLET), 3X/DAY
     Route: 048

REACTIONS (6)
  - Decreased appetite [Not Recovered/Not Resolved]
  - Aggression [Not Recovered/Not Resolved]
  - Drug effect incomplete [Unknown]
  - Abdominal pain upper [Not Recovered/Not Resolved]
  - Psychomotor hyperactivity [Not Recovered/Not Resolved]
  - Product use issue [Not Recovered/Not Resolved]

NARRATIVE: CASE EVENT DATE: 20160128
